FAERS Safety Report 5757996-5 (Version None)
Quarter: 2008Q2

REPORT INFORMATION
  Report Type: 
  Country: None (occurrence: None)
  Receive Date: 20080602
  Receipt Date: 20080602
  Transmission Date: 20081010
  Serious: Yes (Hospitalization)
  Sender: FDA-Public Use
  Company Number: None

PATIENT
  Sex: Female
  Weight: 111.4 kg

DRUGS (2)
  1. RAPAMYCIN [Suspect]
     Indication: GALLBLADDER CANCER METASTATIC
     Dosage: 45MG TWICE WEEKLY PO
     Route: 048
     Dates: start: 20080311, end: 20080312
  2. RAPAMYCIN [Suspect]
     Dosage: 30MG TWICE WEEKLY PO
     Route: 048
     Dates: start: 20080403, end: 20080502

REACTIONS (3)
  - JAUNDICE [None]
  - OEDEMA [None]
  - PLEURAL EFFUSION [None]
